FAERS Safety Report 6472476-X (Version None)
Quarter: 2009Q4

REPORT INFORMATION
  Report Type: 
  Country: None (occurrence: None)
  Receive Date: 20091130
  Receipt Date: 20091112
  Transmission Date: 20100525
  Serious: Yes (Other)
  Sender: FDA-Public Use
  Company Number: 8053309

PATIENT
  Age: 74 Year
  Sex: Female
  Weight: 54 kg

DRUGS (15)
  1. CERTOLIZUMAB PEGOL [Suspect]
     Indication: RHEUMATOID ARTHRITIS
     Dosage: 400 MG 1/2W SC
     Route: 058
     Dates: start: 20050825, end: 20060810
  2. CERTOLIZUMAB PEGOL [Suspect]
     Indication: RHEUMATOID ARTHRITIS
     Dosage: 40 MG 1/2W SC
     Route: 058
     Dates: start: 20060824, end: 20080219
  3. CERTOLIZUMAB PEGOL [Suspect]
     Indication: RHEUMATOID ARTHRITIS
     Dosage: 200 MG 1/2W SC
     Route: 058
     Dates: start: 20080220
  4. METHOTREXATE [Concomitant]
  5. FOLIC ACID [Concomitant]
  6. PILOCARPINE HYDROCHLORIDE [Concomitant]
  7. MODURETIC 5-50 [Concomitant]
  8. MODURETIC 5-50 [Concomitant]
  9. ATENOLOL [Concomitant]
  10. CALCIUM CARBONATE [Concomitant]
  11. VITAMIN D [Concomitant]
  12. IBANDRONATE [Concomitant]
  13. CLONAZEPAM [Concomitant]
  14. SERTRALINE HCL [Concomitant]
  15. ARTIFICAL TEARS [Concomitant]

REACTIONS (15)
  - ANXIETY [None]
  - ARTERIOSCLEROSIS CORONARY ARTERY [None]
  - CALCINOSIS [None]
  - CASTLEMAN'S DISEASE [None]
  - CEREBRAL ATROPHY [None]
  - DILATATION VENTRICULAR [None]
  - EMPHYSEMA [None]
  - ENCEPHALOPATHY [None]
  - HYPERHIDROSIS [None]
  - HYPERTENSION [None]
  - JOINT DISLOCATION [None]
  - ORAL CANDIDIASIS [None]
  - OSTEOARTHRITIS [None]
  - PYREXIA [None]
  - SPINAL OSTEOARTHRITIS [None]
